FAERS Safety Report 14772617 (Version 1)
Quarter: 2018Q2

REPORT INFORMATION
  Report Type: Spontaneous
  Country: JP (occurrence: JP)
  Receive Date: 20180418
  Receipt Date: 20180418
  Transmission Date: 20180711
  Serious: Yes (Other)
  Sender: FDA-Public Use
  Company Number: JP-SUN PHARMACEUTICAL INDUSTRIES LTD-2018RR-170076

PATIENT
  Age: 68 Year
  Sex: Male

DRUGS (3)
  1. CARBOPLATIN. [Suspect]
     Active Substance: CARBOPLATIN
     Indication: ADENOCARCINOMA
     Dosage: 2 CYCLES OF CARBOPLATIN (AUC 1/4 5) PLUS PEMETREXED (500 MG/M2)
     Route: 065
  2. PEMETREXED. [Suspect]
     Active Substance: PEMETREXED
     Indication: ADENOCARCINOMA
     Dosage: 2 CYCLES OF CARBOPLATIN (AUC 1/4 5) PLUS PEMETREXED (500 MG/M2)
     Route: 065
  3. ERLOTINIB [Suspect]
     Active Substance: ERLOTINIB
     Indication: EGFR GENE MUTATION
     Dosage: 100 MG ONCE A DAY
     Route: 065

REACTIONS (4)
  - Disease progression [Unknown]
  - Drug resistance [Unknown]
  - EGFR gene mutation [Unknown]
  - Squamous cell carcinoma [Unknown]
